FAERS Safety Report 25034024 (Version 1)
Quarter: 2025Q1

REPORT INFORMATION
  Report Type: Spontaneous
  Country: US (occurrence: US)
  Receive Date: 20250303
  Receipt Date: 20250303
  Transmission Date: 20250409
  Serious: No
  Sender: ABBVIE
  Company Number: US-ABBVIE-6157202

PATIENT
  Sex: Male

DRUGS (2)
  1. IMBRUVICA [Suspect]
     Active Substance: IBRUTINIB
     Indication: Lymphoma
     Route: 048
  2. IMBRUVICA [Suspect]
     Active Substance: IBRUTINIB
     Indication: Lymphoma
     Route: 048

REACTIONS (5)
  - Off label use [Unknown]
  - Incorrect dose administered [Unknown]
  - Adverse drug reaction [Unknown]
  - Headache [Unknown]
  - Blood pressure increased [Recovering/Resolving]
